FAERS Safety Report 17896153 (Version 5)
Quarter: 2020Q4

REPORT INFORMATION
  Report Type: Spontaneous
  Country: US (occurrence: US)
  Receive Date: 20200615
  Receipt Date: 20201005
  Transmission Date: 20210113
  Serious: Yes (Other)
  Sender: FDA-Public Use
  Company Number: US-AMNEAL PHARMACEUTICALS-2020-AMRX-00708

PATIENT
  Age: 77 Year
  Sex: Female
  Weight: 42.63 kg

DRUGS (4)
  1. AMLODIPINE [Concomitant]
     Active Substance: AMLODIPINE BESYLATE
     Indication: HYPERTENSION
     Dosage: 2.5 MILLIGRAM, 1 /DAY
     Route: 065
  2. RYTARY [Suspect]
     Active Substance: CARBIDOPA\LEVODOPA
     Dosage: 2 CAPSULES, 4 /DAY
     Route: 048
     Dates: start: 2020, end: 20200811
  3. CARBIDOPA-LEVODOPA ER [Suspect]
     Active Substance: CARBIDOPA\LEVODOPA
     Indication: PRODUCT USED FOR UNKNOWN INDICATION
     Dosage: UNK
     Route: 065
  4. RYTARY [Suspect]
     Active Substance: CARBIDOPA\LEVODOPA
     Indication: PARKINSON^S DISEASE
     Dosage: 3 CAPSULES, 4 /DAY
     Route: 048
     Dates: start: 20191213

REACTIONS (7)
  - Tremor [Not Recovered/Not Resolved]
  - Skin exfoliation [Recovered/Resolved]
  - Drug hypersensitivity [Recovered/Resolved]
  - Hyperhidrosis [Recovered/Resolved]
  - Blood pressure increased [Not Recovered/Not Resolved]
  - Dyskinesia [Recovered/Resolved]
  - Urticaria [Recovered/Resolved]

NARRATIVE: CASE EVENT DATE: 20191213
